FAERS Safety Report 4437123-7 (Version None)
Quarter: 2004Q3

REPORT INFORMATION
  Report Type: 
  Country: None (occurrence: None)
  Receive Date: 20040827
  Receipt Date: 20040819
  Transmission Date: 20050211
  Serious: Yes (Hospitalization)
  Sender: FDA-Public Use
  Company Number: 2004220204US

PATIENT
  Age: 23 Year
  Sex: Female
  Weight: 139.7 kg

DRUGS (5)
  1. DEPO-PROVERA [Suspect]
     Indication: CONTRACEPTION
     Dosage: SEE IMAGE
     Dates: start: 20020423, end: 20020423
  2. DEPO-PROVERA [Suspect]
     Indication: CONTRACEPTION
     Dosage: SEE IMAGE
     Dates: start: 20040203, end: 20040203
  3. DEPO-PROVERA [Suspect]
  4. TYLENOL [Concomitant]
  5. IBUPROFEN [Concomitant]

REACTIONS (2)
  - ANAEMIA [None]
  - UTERINE HAEMORRHAGE [None]
